FAERS Safety Report 8844778 (Version 2)
Quarter: 2012Q4

REPORT INFORMATION
  Report Type: 
  Country: FR (occurrence: FR)
  Receive Date: 20121017
  Receipt Date: 20121029
  Transmission Date: 20130627
  Serious: Yes (Life-Threatening)
  Sender: FDA-Public Use
  Company Number: FR-009507513-1210FRA004609

PATIENT
  Age: 79 Year
  Sex: Female

DRUGS (6)
  1. ESMERON [Suspect]
     Indication: INDUCTION OF ANAESTHESIA
     Dosage: UNK
     Route: 042
     Dates: start: 20120426, end: 20120426
  2. PREDNISONE [Concomitant]
     Indication: PRODUCT USED FOR UNKNOWN INDICATION
     Dosage: UNK
     Dates: start: 20120426
  3. BETADINE [Concomitant]
     Indication: PREOPERATIVE CARE
     Dosage: UNK
     Route: 003
     Dates: start: 20120426, end: 20120426
  4. MIDAZOLAM [Concomitant]
     Indication: ANAESTHETIC PREMEDICATION
     Dosage: UNK
     Route: 042
     Dates: start: 20120426, end: 20120426
  5. REMIFENTANIL HYDROCHLORIDE [Concomitant]
     Indication: INDUCTION OF ANAESTHESIA
     Dosage: UNK
     Route: 042
     Dates: start: 20120426, end: 20120426
  6. ETOMIDATE [Concomitant]
     Indication: INDUCTION OF ANAESTHESIA
     Dosage: UNK
     Route: 042
     Dates: start: 20120426, end: 20120426

REACTIONS (1)
  - Type I hypersensitivity [Recovered/Resolved]
